FAERS Safety Report 4807203-2 (Version None)
Quarter: 2005Q4

REPORT INFORMATION
  Report Type: 
  Country: None (occurrence: None)
  Receive Date: 20051024
  Receipt Date: 20051012
  Transmission Date: 20060501
  Serious: Yes (Other)
  Sender: FDA-Public Use
  Company Number: US-GLAXOSMITHKLINE-A0577959A

PATIENT
  Age: 69 Year
  Sex: Female
  Weight: 68 kg

DRUGS (6)
  1. ECOTRIN ADULT LOW STRENGTH TABLETS [Suspect]
     Indication: PROPHYLAXIS
     Route: 048
  2. ZOCOR [Concomitant]
  3. ANTIHYPERTENSIVE [Concomitant]
  4. MULTI-VITAMIN [Concomitant]
  5. THIAMINE HCL [Concomitant]
  6. VITAMIN B6 [Concomitant]

REACTIONS (1)
  - POST PROCEDURAL HAEMORRHAGE [None]
